FAERS Safety Report 24019469 (Version 2)
Quarter: 2024Q3

REPORT INFORMATION
  Report Type: Spontaneous
  Country: US (occurrence: US)
  Receive Date: 20240627
  Receipt Date: 20240704
  Transmission Date: 20241017
  Serious: Yes (Death, Life-Threatening, Hospitalization, Other)
  Sender: CIPLA
  Company Number: US-CIPLA LTD.-2024US06507

PATIENT

DRUGS (3)
  1. AMLODIPINE [Suspect]
     Active Substance: AMLODIPINE BESYLATE
     Indication: Product used for unknown indication
     Dosage: UNK
     Route: 065
  2. CARVEDILOL [Suspect]
     Active Substance: CARVEDILOL
     Indication: Product used for unknown indication
     Dosage: UNK
     Route: 065
  3. DIPHENHYDRAMINE [Suspect]
     Active Substance: DIPHENHYDRAMINE
     Indication: Product used for unknown indication
     Dosage: UNK, MULTIPLE EMPTY PILL BOTTLES
     Route: 065

REACTIONS (9)
  - Bradycardia [Fatal]
  - Hypoglycaemia [Fatal]
  - White blood cell count increased [Fatal]
  - Aspiration [Fatal]
  - Lethargy [Fatal]
  - Overdose [Fatal]
  - Lung infiltration [Fatal]
  - Shock [Fatal]
  - Loss of consciousness [Fatal]
